FAERS Safety Report 5594401-6 (Version None)
Quarter: 2008Q1

REPORT INFORMATION
  Report Type: 
  Country: None (occurrence: None)
  Receive Date: 20080117
  Receipt Date: 20080110
  Transmission Date: 20080703
  Serious: Yes (Other)
  Sender: FDA-Public Use
  Company Number: CA-JNJFOC-20080102655

PATIENT
  Sex: Male

DRUGS (2)
  1. REMICADE [Suspect]
     Dosage: 1 INFUSION ON AN UNKNOWN DATE
     Route: 042
  2. REMICADE [Suspect]
     Indication: SPONDYLITIS
     Dosage: 3 INFUSIONS ON UNKNOWN DATES
     Route: 042

REACTIONS (5)
  - ABDOMINAL PAIN [None]
  - BLOOD IRON INCREASED [None]
  - COLITIS [None]
  - DIARRHOEA HAEMORRHAGIC [None]
  - LYMPHOMA [None]
